FAERS Safety Report 18632172 (Version 1)
Quarter: 2020Q4

REPORT INFORMATION
  Report Type: Spontaneous
  Country: US (occurrence: US)
  Receive Date: 20201217
  Receipt Date: 20201217
  Transmission Date: 20210114
  Serious: No
  Sender: FDA-Public Use
  Company Number: US-DRREDDYS-USA/USA/20/0129798

PATIENT
  Age: 80 Year
  Sex: Female
  Weight: 54 kg

DRUGS (1)
  1. NUPERCAINAL [Suspect]
     Active Substance: DIBUCAINE
     Indication: INJURY
     Route: 061

REACTIONS (2)
  - Product use in unapproved indication [Unknown]
  - Expired product administered [Unknown]
